FAERS Safety Report 23520593 (Version 1)
Quarter: 2024Q1

REPORT INFORMATION
  Report Type: Spontaneous
  Country: US (occurrence: US)
  Receive Date: 20240214
  Receipt Date: 20240214
  Transmission Date: 20240409
  Serious: No
  Sender: FDA-Public Use
  Company Number: US-ALMIRALL-US-2024-0305

PATIENT
  Sex: Male

DRUGS (1)
  1. KLISYRI [Suspect]
     Active Substance: TIRBANIBULIN
     Dosage: FROM 29 JAN 2024 (MONDAY) TO HIS NOSE EVERY NIGHT FOR 5 NIGHTS (MONDAY TO FRIDAY NIGHT)
     Route: 061
     Dates: start: 20240129, end: 20240202

REACTIONS (2)
  - Erythema [Unknown]
  - Rhinalgia [Unknown]
